FAERS Safety Report 4561723-7 (Version None)
Quarter: 2005Q1

REPORT INFORMATION
  Report Type: 
  Country: None (occurrence: None)
  Receive Date: 20050125
  Receipt Date: 20050111
  Transmission Date: 20050727
  Serious: No
  Sender: FDA-Public Use
  Company Number: 05H-259-0286527-00

PATIENT

DRUGS (4)
  1. MORPHINE SULFATE INJ [Suspect]
     Indication: PREMEDICATION
     Dosage: 0.07 MG/KG, INTRAMUSCULAR
     Route: 030
  2. LORAZEPAM [Concomitant]
  3. HYDROXYZINE [Concomitant]
  4. DICLOFENAC [Concomitant]

REACTIONS (2)
  - RESPIRATORY DEPRESSION [None]
  - SEDATION [None]
